FAERS Safety Report 7250069-4 (Version None)
Quarter: 2011Q1

REPORT INFORMATION
  Report Type: 
  Country: None (occurrence: None)
  Receive Date: 20110128
  Receipt Date: 20110103
  Transmission Date: 20110831
  Serious: Yes (Other)
  Sender: FDA-Public Use
  Company Number: US-BAYER-2010-001457

PATIENT
  Sex: Female

DRUGS (3)
  1. IBUPROFEN [Concomitant]
  2. LEVOTHYROXINE SODIUM [Concomitant]
  3. INTERFERON BETA-1B [Suspect]
     Indication: MULTIPLE SCLEROSIS
     Dosage: 2 MIU, QOD
     Route: 058
     Dates: start: 20101129

REACTIONS (8)
  - HALLUCINATION, VISUAL [None]
  - ABNORMAL SENSATION IN EYE [None]
  - NAUSEA [None]
  - MALAISE [None]
  - HYPOTHYROIDISM [None]
  - EYE PAIN [None]
  - VISION BLURRED [None]
  - PAIN [None]
